FAERS Safety Report 4803929-5 (Version None)
Quarter: 2005Q3

REPORT INFORMATION
  Report Type: 
  Country: None (occurrence: None)
  Receive Date: 20050920
  Receipt Date: 20050725
  Transmission Date: 20060218
  Serious: No
  Sender: FDA-Public Use
  Company Number: US-YAMANOUCHI-YPA20050280

PATIENT
  Age: 88 Year
  Sex: Female
  Weight: 55.7924 kg

DRUGS (6)
  1. VESICARE [Suspect]
     Dosage: 5 MG QD PO
     Route: 048
     Dates: start: 20050506
  2. DIOVAN [Concomitant]
  3. PREMARIN [Concomitant]
  4. M.V.I. [Concomitant]
  5. CALCIUM W. VIT D [Concomitant]
  6. ASCORBIC ACID [Concomitant]

REACTIONS (1)
  - DRY MOUTH [None]
